FAERS Safety Report 8049233-6 (Version None)
Quarter: 2011Q4

REPORT INFORMATION
  Report Type: 
  Country: None (occurrence: None)
  Receive Date: 20111209
  Receipt Date: 20111018
  Transmission Date: 20120403
  Serious: No
  Sender: FDA-Public Use
  Company Number: TH-2011-00455

PATIENT
  Sex: Male

DRUGS (3)
  1. PLAVIX [Concomitant]
  2. ASPIRIN [Concomitant]
  3. EGRIFTA [Suspect]
     Indication: LIPODYSTROPHY ACQUIRED
     Dosage: 1 IN 1 D , SUBCUTANEOUS
     Route: 058

REACTIONS (2)
  - INJECTION SITE MASS [None]
  - CONTUSION [None]
